FAERS Safety Report 7041465-9 (Version None)
Quarter: 2010Q4

REPORT INFORMATION
  Report Type: 
  Country: None (occurrence: None)
  Receive Date: 20101013
  Receipt Date: 20090824
  Transmission Date: 20110411
  Serious: No
  Sender: FDA-Public Use
  Company Number: US-ASTRAZENECA-2009SE09583

PATIENT
  Age: 6 Year
  Sex: Female
  Weight: 23.1 kg

DRUGS (5)
  1. SYMBICORT [Suspect]
     Indication: ASTHMA
     Dosage: 160/4.5 2 PUFFS
     Route: 055
     Dates: start: 20090801, end: 20090822
  2. AUGMENTIN 600 [Concomitant]
     Indication: UPPER RESPIRATORY TRACT INFECTION
  3. NASONEX [Concomitant]
  4. ZYRTEC [Concomitant]
  5. XOPENEX [Concomitant]
     Dosage: AS NEEDED

REACTIONS (3)
  - COUGH [None]
  - PYREXIA [None]
  - THROAT IRRITATION [None]
